FAERS Safety Report 4874198-5 (Version None)
Quarter: 2006Q1

REPORT INFORMATION
  Report Type: 
  Country: None (occurrence: None)
  Receive Date: 20060104
  Receipt Date: 20051219
  Transmission Date: 20060701
  Serious: Yes (Other)
  Sender: FDA-Public Use
  Company Number: 2005170557

PATIENT
  Sex: Male

DRUGS (6)
  1. VIAGRA [Suspect]
     Indication: ILL-DEFINED DISORDER
     Dosage: (50 MG)
  2. LIPITOR [Concomitant]
  3. ALL OTHER THERAPEUTIC PRODUCTS (ALL OTHER THERAPEUTIC PRODUCTS) [Concomitant]
  4. VERAPAMIL [Concomitant]
  5. VALSARTAN [Concomitant]
  6. ENALAPRIL MALEATE [Concomitant]

REACTIONS (13)
  - BLADDER SPASM [None]
  - BLOOD CHOLESTEROL INCREASED [None]
  - CARDIAC FAILURE CONGESTIVE [None]
  - CATHETER SITE DISCHARGE [None]
  - CATHETER SITE HAEMORRHAGE [None]
  - CHRONIC OBSTRUCTIVE PULMONARY DISEASE [None]
  - DIABETES MELLITUS NON-INSULIN-DEPENDENT [None]
  - ERECTION INCREASED [None]
  - HYPERTENSION [None]
  - INSOMNIA [None]
  - MICTURITION URGENCY [None]
  - NEPHROLITHIASIS [None]
  - THROMBOSIS IN DEVICE [None]
